FAERS Safety Report 11647282 (Version 1)
Quarter: 2015Q4

REPORT INFORMATION
  Report Type: Spontaneous
  Country: FR (occurrence: FR)
  Receive Date: 20151021
  Receipt Date: 20151021
  Transmission Date: 20160304
  Serious: Yes (Hospitalization)
  Sender: FDA-Public Use
  Company Number: FR-ROCHE-1647437

PATIENT
  Age: 51 Year
  Sex: Female

DRUGS (5)
  1. PARACETAMOL [Concomitant]
     Active Substance: ACETAMINOPHEN
     Dosage: ONGOING TREATMENT
     Route: 048
  2. ZELBORAF [Suspect]
     Active Substance: VEMURAFENIB
     Indication: METASTATIC MALIGNANT MELANOMA
     Route: 048
     Dates: start: 20150826, end: 20150911
  3. INNOHEP [Concomitant]
     Active Substance: TINZAPARIN SODIUM
     Dosage: ONGOING TREATMENT
     Route: 058
     Dates: start: 20150826
  4. TAFINLAR [Concomitant]
     Active Substance: DABRAFENIB MESYLATE
     Dosage: IN MORNING AND IN EVENING.
     Route: 065
     Dates: start: 20150923
  5. XANAX [Concomitant]
     Active Substance: ALPRAZOLAM
     Dosage: ONGOING TREATMENT
     Route: 048

REACTIONS (2)
  - Pancytopenia [Recovered/Resolved]
  - Photosensitivity reaction [Recovered/Resolved]

NARRATIVE: CASE EVENT DATE: 20150910
